FAERS Safety Report 6460940-9 (Version None)
Quarter: 2009Q4

REPORT INFORMATION
  Report Type: 
  Country: None (occurrence: None)
  Receive Date: 20091130
  Receipt Date: 20091119
  Transmission Date: 20100525
  Serious: Yes (Other)
  Sender: FDA-Public Use
  Company Number: AU-ASTRAZENECA-2009SE27722

PATIENT
  Age: 74 Year
  Sex: Female

DRUGS (1)
  1. ARIMIDEX [Suspect]
     Indication: BREAST CANCER
     Route: 048
     Dates: start: 20050501

REACTIONS (5)
  - ARTHRITIS [None]
  - OSTEOARTHRITIS [None]
  - SCOLIOSIS [None]
  - SPINAL FRACTURE [None]
  - SPINAL OSTEOARTHRITIS [None]
